FAERS Safety Report 5818909-0 (Version None)
Quarter: 2008Q3

REPORT INFORMATION
  Report Type: 
  Country: None (occurrence: None)
  Receive Date: 20080721
  Receipt Date: 20080721
  Transmission Date: 20090109
  Serious: Yes (Other)
  Sender: FDA-Public Use
  Company Number: None

PATIENT
  Age: 15 Year
  Sex: Female
  Weight: 37.6486 kg

DRUGS (3)
  1. AMOXICILLIN [Suspect]
     Indication: HEART DISEASE CONGENITAL
     Dosage: 500 MG 4 CAPSULES  1HR. BEFORE DENTAL PO
     Route: 048
     Dates: start: 20010101, end: 20080630
  2. AMOXICILLIN [Suspect]
     Indication: PULMONARY ARTERY STENOSIS CONGENITAL
     Dosage: 500 MG 4 CAPSULES  1HR. BEFORE DENTAL PO
     Route: 048
     Dates: start: 20010101, end: 20080630
  3. AMOXICILLIN [Suspect]
     Indication: VENTRICULAR SEPTAL DEFECT
     Dosage: 500 MG 4 CAPSULES  1HR. BEFORE DENTAL PO
     Route: 048
     Dates: start: 20010101, end: 20080630

REACTIONS (2)
  - ABNORMAL BEHAVIOUR [None]
  - PSYCHOTIC DISORDER [None]
